FAERS Safety Report 24032027 (Version 1)
Quarter: 2024Q2

REPORT INFORMATION
  Report Type: Report from Study
  Country: GB (occurrence: GB)
  Receive Date: 20240630
  Receipt Date: 20240630
  Transmission Date: 20240716
  Serious: Yes (Other)
  Sender: FDA-Public Use
  Company Number: GB-SANDOZ-SDZ2024GB061294

PATIENT
  Sex: Male

DRUGS (1)
  1. OMNITROPE [Suspect]
     Active Substance: SOMATROPIN
     Indication: Hyperpituitarism
     Dosage: 10 (0.7 MG)
     Route: 065
     Dates: start: 20240625

REACTIONS (3)
  - Autism spectrum disorder [Unknown]
  - Emotional distress [Unknown]
  - Device dispensing error [Unknown]
